FAERS Safety Report 25970373 (Version 1)
Quarter: 2025Q4

REPORT INFORMATION
  Report Type: Spontaneous
  Country: US (occurrence: US)
  Receive Date: 20251028
  Receipt Date: 20251028
  Transmission Date: 20260117
  Serious: Yes (Other)
  Sender: ROCHE
  Company Number: US-ROCHE-10000416821

PATIENT
  Age: 44 Year
  Sex: Female
  Weight: 140 kg

DRUGS (1)
  1. OCREVUS [Suspect]
     Active Substance: OCRELIZUMAB
     Indication: Multiple sclerosis
     Dosage: STRENGTH: 300 MG/10ML, DOSAGE FORM: SOLUTION
     Route: 042

REACTIONS (2)
  - Chronic gastritis [Unknown]
  - Carcinoid tumour [Unknown]
